FAERS Safety Report 23040687 (Version 1)
Quarter: 2023Q4

REPORT INFORMATION
  Report Type: Spontaneous
  Country: SE (occurrence: SE)
  Receive Date: 20231006
  Receipt Date: 20231006
  Transmission Date: 20240110
  Serious: Yes (Death)
  Sender: FDA-Public Use
  Company Number: None

PATIENT

DRUGS (1)
  1. VALACYCLOVIR HYDROCHLORIDE [Suspect]
     Active Substance: VALACYCLOVIR HYDROCHLORIDE
     Indication: Herpes zoster
     Dosage: 1000 MG, TID, 2X3
     Route: 048
     Dates: start: 20230616, end: 20230617

REACTIONS (1)
  - Confusional state [Fatal]

NARRATIVE: CASE EVENT DATE: 20230601
